FAERS Safety Report 11374476 (Version 1)
Quarter: 2015Q3

REPORT INFORMATION
  Report Type: Spontaneous
  Country: US (occurrence: US)
  Receive Date: 20150813
  Receipt Date: 20150813
  Transmission Date: 20151125
  Serious: Yes (Death, Other)
  Sender: FDA-Public Use
  Company Number: US-ROCHE-1619222

PATIENT
  Age: 40 Year
  Sex: Female

DRUGS (1)
  1. METALYSE [Suspect]
     Active Substance: TENECTEPLASE
     Indication: PULMONARY EMBOLISM
     Route: 065

REACTIONS (6)
  - Status epilepticus [Fatal]
  - Hypotension [Unknown]
  - Product use issue [Unknown]
  - Anaemia [Unknown]
  - Liver injury [Fatal]
  - Hepatic haematoma [Fatal]
